FAERS Safety Report 4335571-7 (Version None)
Quarter: 2004Q2

REPORT INFORMATION
  Report Type: 
  Country: None (occurrence: None)
  Receive Date: 20040406
  Receipt Date: 20040325
  Transmission Date: 20050107
  Serious: Yes (Hospitalization)
  Sender: FDA-Public Use
  Company Number: 04P-163-025487-00

PATIENT
  Age: 61 Year
  Sex: Female
  Weight: 57.1532 kg

DRUGS (3)
  1. HUMIRA [Suspect]
     Indication: RHEUMATOID ARTHRITIS
     Dosage: SEE IMAGE
     Route: 058
     Dates: start: 20030401, end: 20030701
  2. HUMIRA [Suspect]
     Indication: RHEUMATOID ARTHRITIS
     Dosage: SEE IMAGE
     Route: 058
     Dates: start: 20030801
  3. LEFLUNOMIDE [Concomitant]

REACTIONS (5)
  - DIVERTICULITIS [None]
  - FATIGUE [None]
  - INFECTION [None]
  - INJECTION SITE BURNING [None]
  - SINUSITIS [None]
